FAERS Safety Report 4512637-X (Version None)
Quarter: 2004Q4

REPORT INFORMATION
  Report Type: 
  Country: None (occurrence: None)
  Receive Date: 20041008
  Receipt Date: 20040827
  Transmission Date: 20050328
  Serious: Yes (Other)
  Sender: FDA-Public Use
  Company Number: 2004S1000176

PATIENT
  Sex: Female

DRUGS (2)
  1. CUBICIN [Suspect]
     Indication: OSTEOMYELITIS
     Dosage: IV
     Route: 042
     Dates: start: 20040601, end: 20040827
  2. CUBICIN [Suspect]
     Indication: STAPHYLOCOCCAL INFECTION
     Dosage: IV
     Route: 042
     Dates: start: 20040601, end: 20040827

REACTIONS (5)
  - CHILLS [None]
  - HYPERSENSITIVITY [None]
  - PYREXIA [None]
  - TACHYCARDIA [None]
  - WHEEZING [None]
